FAERS Safety Report 4740672-5 (Version None)
Quarter: 2005Q3

REPORT INFORMATION
  Report Type: 
  Country: None (occurrence: None)
  Receive Date: 20050801
  Receipt Date: 20050630
  Transmission Date: 20060218
  Serious: No
  Sender: FDA-Public Use
  Company Number: 2005PV000213

PATIENT
  Age: 56 Year
  Sex: Female
  Weight: 91.6266 kg

DRUGS (13)
  1. BYETTA [Suspect]
     Indication: DIABETES MELLITUS NON-INSULIN-DEPENDENT
     Dosage: 5 UG; BID; SC
     Route: 058
     Dates: start: 20050627
  2. AVANDIA [Concomitant]
  3. METFORMIN HCL [Concomitant]
  4. GEMFIBROZIL [Concomitant]
  5. LOTENSIN [Concomitant]
  6. FOSINOPRIL SODIUM [Concomitant]
  7. TOPROL-XL [Concomitant]
  8. ZETIA [Concomitant]
  9. RANITIDINE HCL [Concomitant]
  10. CELEXA [Concomitant]
  11. TRAZODONE [Concomitant]
  12. NOVOLOG [Concomitant]
  13. LANTUS [Concomitant]

REACTIONS (2)
  - DECREASED APPETITE [None]
  - NAUSEA [None]
